FAERS Safety Report 13130090 (Version 2)
Quarter: 2017Q1

REPORT INFORMATION
  Report Type: Report from Study
  Country: IT (occurrence: IT)
  Receive Date: 20170119
  Receipt Date: 20170123
  Transmission Date: 20170428
  Serious: Yes (Other)
  Sender: FDA-Public Use
  Company Number: IT-TEVA-723771ACC

PATIENT
  Age: 76 Year
  Sex: Male

DRUGS (3)
  1. GLICONORM - 5 MG + 500 MG COMPRESSE RIVESTITE CON FILM - ABIOGEN PHARM [Interacting]
     Active Substance: GLYBURIDE\METFORMIN
     Indication: DIABETES MELLITUS
     Dates: start: 20160101, end: 20160613
  2. DELTACORTENE - 25 MG COMPRESSE [Concomitant]
     Indication: PEMPHIGOID
     Dates: start: 20160608, end: 20160613
  3. METFORMIN HYDROCHLORIDE. [Suspect]
     Active Substance: METFORMIN HYDROCHLORIDE
     Indication: DIABETES MELLITUS
     Dates: start: 20160608, end: 20160613

REACTIONS (3)
  - Hypoglycaemia [Recovered/Resolved]
  - Asthenia [Recovered/Resolved]
  - Drug interaction [Recovered/Resolved]

NARRATIVE: CASE EVENT DATE: 20160613
